FAERS Safety Report 4700812-0 (Version None)
Quarter: 2005Q2

REPORT INFORMATION
  Report Type: 
  Country: None (occurrence: None)
  Receive Date: 20050624
  Receipt Date: 20041102
  Transmission Date: 20051028
  Serious: Yes (Death)
  Sender: FDA-Public Use
  Company Number: 385386

PATIENT
  Sex: 0

DRUGS (2)
  1. XELODA [Suspect]
     Indication: COLORECTAL CANCER METASTATIC
     Dosage: ORAL
     Route: 048
     Dates: start: 20010615
  2. FUDR [Suspect]
     Dosage: INTRA-ARTERIAL
     Route: 013
     Dates: start: 20010615

REACTIONS (1)
  - DEATH [None]
